FAERS Safety Report 22656518 (Version 7)
Quarter: 2024Q1

REPORT INFORMATION
  Report Type: Report from Study
  Country: US (occurrence: US)
  Receive Date: 20230630
  Receipt Date: 20240318
  Transmission Date: 20240410
  Serious: Yes (Other)
  Sender: FDA-Public Use
  Company Number: US-ACADIA PHARMACEUTICALS INC.-ACA-2023-TRF-002197

PATIENT
  Age: 4 Year
  Sex: Female

DRUGS (22)
  1. DAYBUE [Suspect]
     Active Substance: TROFINETIDE
     Indication: Rett syndrome
     Dosage: 10 MILLILITER, BID
     Route: 048
     Dates: start: 20230602
  2. DAYBUE [Suspect]
     Active Substance: TROFINETIDE
     Dosage: 15 MILLILITER
     Route: 048
  3. DAYBUE [Suspect]
     Active Substance: TROFINETIDE
     Dosage: 30 MILLILITER, BID
     Route: 048
  4. DAYBUE [Suspect]
     Active Substance: TROFINETIDE
     Dosage: 25 MILLILITER, BID
     Route: 048
  5. DAYBUE [Suspect]
     Active Substance: TROFINETIDE
     Dosage: 30 MILLILITER, BID, G-TUBE
  6. DAYBUE [Suspect]
     Active Substance: TROFINETIDE
     Dosage: 25 MILLILITER, BID, G-TUBE
  7. DAYBUE [Suspect]
     Active Substance: TROFINETIDE
     Dosage: 27 MILLILITER, BID, G-TUBE
  8. DAYBUE [Suspect]
     Active Substance: TROFINETIDE
     Dosage: INCREASED BY 1 ML IN MORNING
     Route: 048
  9. DAYBUE [Suspect]
     Active Substance: TROFINETIDE
     Dosage: 28 MILLILITER, BID
     Route: 048
  10. DAYBUE [Suspect]
     Active Substance: TROFINETIDE
     Dosage: 27 MILLILITER, BID
     Route: 048
  11. DAYBUE [Suspect]
     Active Substance: TROFINETIDE
     Dosage: 28 MILLILITER, BID
     Route: 048
  12. DAYBUE [Suspect]
     Active Substance: TROFINETIDE
     Dosage: 27 MILLILITER, BID
     Route: 048
  13. CHILDRENS TYLENOL [Concomitant]
     Active Substance: ACETAMINOPHEN
  14. MELATONIN [Concomitant]
     Active Substance: MELATONIN
  15. CHOLECALCIFEROL [Concomitant]
     Active Substance: CHOLECALCIFEROL
  16. CALCIUM CARBONATE [Concomitant]
     Active Substance: CALCIUM CARBONATE
  17. FAMOTIDINE [Concomitant]
     Active Substance: FAMOTIDINE
     Route: 048
  18. DIAZEPAM [Concomitant]
     Active Substance: DIAZEPAM
  19. VITAMINS NOS [Concomitant]
     Active Substance: VITAMINS
  20. CLOBAZAM [Concomitant]
     Active Substance: CLOBAZAM
  21. CHILDREN^S MULTIVITAMIN [Concomitant]
  22. EPIDIOLEX [Concomitant]
     Active Substance: CANNABIDIOL

REACTIONS (23)
  - Dystonia [Recovered/Resolved]
  - Seizure [Recovered/Resolved]
  - Musculoskeletal stiffness [Recovered/Resolved]
  - Tremor [Recovered/Resolved]
  - Oral pain [Recovered/Resolved]
  - Reflexes abnormal [Recovered/Resolved]
  - Frequent bowel movements [Recovered/Resolved]
  - Erythema [Not Recovered/Not Resolved]
  - Muscle spasticity [Not Recovered/Not Resolved]
  - Gastrooesophageal reflux disease [Recovered/Resolved]
  - Feeling jittery [Recovering/Resolving]
  - Drooling [Not Recovered/Not Resolved]
  - Breath holding [Not Recovered/Not Resolved]
  - Underdose [Not Recovered/Not Resolved]
  - Hypersomnia [Unknown]
  - Gastric infection [Unknown]
  - Nasal congestion [Not Recovered/Not Resolved]
  - Diarrhoea [Recovered/Resolved]
  - Vomiting [Recovered/Resolved]
  - Vomiting [Not Recovered/Not Resolved]
  - Nasopharyngitis [Unknown]
  - Diarrhoea [Unknown]
  - Pyrexia [Not Recovered/Not Resolved]

NARRATIVE: CASE EVENT DATE: 20230602
